FAERS Safety Report 9581234 (Version 1)
Quarter: 2013Q4

REPORT INFORMATION
  Report Type: Spontaneous
  Country: GB (occurrence: GB)
  Receive Date: 20131002
  Receipt Date: 20131002
  Transmission Date: 20140711
  Serious: Yes (Other)
  Sender: FDA-Public Use
  Company Number: PHHY2013GB107243

PATIENT
  Sex: 0

DRUGS (11)
  1. AMOXICILLIN [Suspect]
     Dates: start: 20130820
  2. TRAMADOL [Concomitant]
     Dates: start: 20130417
  3. ASPIRIN [Concomitant]
     Dates: start: 20130508, end: 20130703
  4. ASPIRIN [Concomitant]
     Dates: start: 20130719
  5. BENDROFLUMETHIAZIDE [Concomitant]
     Dates: start: 20130508, end: 20130703
  6. BENDROFLUMETHIAZIDE [Concomitant]
     Dates: start: 20130719
  7. BISOPROLOL [Concomitant]
     Dates: start: 20130508, end: 20130703
  8. BISOPROLOL [Concomitant]
     Dates: start: 20130719
  9. FLUTICASONE [Concomitant]
     Dates: start: 20130508, end: 20130703
  10. ATORVASTATIN [Concomitant]
     Dates: start: 20130508, end: 20130703
  11. ATORVASTATIN [Concomitant]
     Dates: start: 20130719

REACTIONS (1)
  - Swelling face [Recovering/Resolving]
